FAERS Safety Report 6268538-2 (Version None)
Quarter: 2009Q3

REPORT INFORMATION
  Report Type: 
  Country: None (occurrence: None)
  Receive Date: 20090710
  Receipt Date: 20090515
  Transmission Date: 20100115
  Serious: Yes (Other)
  Sender: FDA-Public Use
  Company Number: VAL_00280_2009

PATIENT
  Sex: Male

DRUGS (1)
  1. MARPLAN [Suspect]
     Indication: ANTIDEPRESSANT THERAPY
     Dosage: DF, 90 MG, DF
     Dates: start: 19870101, end: 19900101

REACTIONS (3)
  - INSOMNIA [None]
  - OVERDOSE [None]
  - WEIGHT INCREASED [None]
